FAERS Safety Report 5510193-0 (Version None)
Quarter: 2007Q4

REPORT INFORMATION
  Report Type: 
  Country: None (occurrence: None)
  Receive Date: 20071106
  Receipt Date: 20071106
  Transmission Date: 20080405
  Serious: Yes (Life-Threatening)
  Sender: FDA-Public Use
  Company Number: None

PATIENT
  Sex: Female
  Weight: 90.7194 kg

DRUGS (1)
  1. BYETTA [Suspect]
     Indication: BLOOD GLUCOSE INCREASED
     Dosage: 5 MG TWICE DAILY
     Dates: start: 20071002, end: 20071030

REACTIONS (3)
  - ANAPHYLACTIC REACTION [None]
  - INJECTION SITE MASS [None]
  - PRURITUS [None]
